FAERS Safety Report 25547184 (Version 1)
Quarter: 2025Q3

REPORT INFORMATION
  Report Type: Spontaneous
  Country: US (occurrence: US)
  Receive Date: 20250714
  Receipt Date: 20250714
  Transmission Date: 20251020
  Serious: No
  Sender: SANOFI AVENTIS
  Company Number: US-SA-2025SA195278

PATIENT
  Age: 49 Year
  Sex: Female
  Weight: 220 kg

DRUGS (1)
  1. DUPIXENT [Suspect]
     Active Substance: DUPILUMAB
     Indication: Multiple sclerosis
     Dosage: 300 MG, QOW
     Route: 058

REACTIONS (6)
  - Chills [Unknown]
  - Pain [Unknown]
  - Pyrexia [Unknown]
  - Migraine [Unknown]
  - Hypertension [Unknown]
  - Product use in unapproved indication [Unknown]
